FAERS Safety Report 16321925 (Version 4)
Quarter: 2019Q3

REPORT INFORMATION
  Report Type: Spontaneous
  Country: US (occurrence: US)
  Receive Date: 20190516
  Receipt Date: 20190905
  Transmission Date: 20191004
  Serious: Yes (Hospitalization)
  Sender: FDA-Public Use
  Company Number: US-VERTEX PHARMACEUTICALS-2019-004258

PATIENT
  Age: 13 Year
  Sex: Female

DRUGS (6)
  1. SYMDEKO [Suspect]
     Active Substance: IVACAFTOR\TEZACAFTOR
     Indication: CYSTIC FIBROSIS
     Dosage: 100MG TEZACAFTOR/150MG IVACAFTOR AM; 150MG IVACAFTOR PM
     Route: 048
     Dates: start: 20190118
  2. PERTZYE [Suspect]
     Active Substance: PANCRELIPASE AMYLASE\PANCRELIPASE LIPASE\PANCRELIPASE PROTEASE
     Indication: CYSTIC FIBROSIS
     Dosage: 4 CAPS WITH MEALS AND SNACKS, 2 CAPS EVERY HOUR DURING ENTERAL FEEDS
     Route: 048
     Dates: start: 20190121
  3. VITAMIN A                          /00056001/ [Concomitant]
     Active Substance: RETINOL
  4. VITAMIN D2 [Concomitant]
     Active Substance: ERGOCALCIFEROL
  5. PEDIASURE                          /07459601/ [Concomitant]
  6. KITABIS PAK [Concomitant]
     Active Substance: TOBRAMYCIN

REACTIONS (2)
  - Infective pulmonary exacerbation of cystic fibrosis [Recovered/Resolved]
  - Treatment noncompliance [Unknown]

NARRATIVE: CASE EVENT DATE: 201904
